FAERS Safety Report 18624337 (Version 4)
Quarter: 2021Q1

REPORT INFORMATION
  Report Type: Report from Study
  Country: GB (occurrence: GB)
  Receive Date: 20201216
  Receipt Date: 20210208
  Transmission Date: 20210419
  Serious: Yes (Hospitalization)
  Sender: FDA-Public Use
  Company Number: NVSC2020GB331095

PATIENT
  Sex: Female

DRUGS (3)
  1. SANDOSTATIN LAR DEPOT [Suspect]
     Active Substance: OCTREOTIDE ACETATE
     Indication: NEUROENDOCRINE TUMOUR
     Dosage: 30 MG, Q4W
     Route: 030
     Dates: start: 2014
  2. SANDOSTATIN LAR DEPOT [Suspect]
     Active Substance: OCTREOTIDE ACETATE
     Dosage: 30 MG, Q3W
     Route: 030
     Dates: start: 2014
  3. SANDOSTATIN LAR DEPOT [Suspect]
     Active Substance: OCTREOTIDE ACETATE
     Dosage: 30 MG, Q3W
     Route: 030
     Dates: start: 2014

REACTIONS (7)
  - Inappropriate schedule of product administration [Unknown]
  - Cholecystitis acute [Unknown]
  - Acute kidney injury [Unknown]
  - COVID-19 [Unknown]
  - Gallbladder disorder [Unknown]
  - Cholelithiasis [Unknown]
  - Renal failure [Unknown]

NARRATIVE: CASE EVENT DATE: 20201207
